FAERS Safety Report 9849231 (Version 1)
Quarter: 2014Q1

REPORT INFORMATION
  Report Type: Spontaneous
  Country: US (occurrence: None)
  Receive Date: 20140127
  Receipt Date: 20140127
  Transmission Date: 20141002
  Serious: Yes (Hospitalization)
  Sender: FDA-Public Use
  Company Number: None

PATIENT
  Age: 33 Year
  Sex: Female

DRUGS (1)
  1. DEPO PROVERA [Suspect]
     Indication: CONTRACEPTION
     Dosage: INTO THE MUSCLE
     Dates: start: 20130201, end: 20140113

REACTIONS (3)
  - Vision blurred [None]
  - Optic nerve disorder [None]
  - Multiple sclerosis [None]
